FAERS Safety Report 21391068 (Version 1)
Quarter: 2022Q3

REPORT INFORMATION
  Report Type: Spontaneous
  Country: GR (occurrence: GR)
  Receive Date: 20220929
  Receipt Date: 20220929
  Transmission Date: 20221027
  Serious: Yes (Hospitalization)
  Sender: FDA-Public Use
  Company Number: None

PATIENT
  Age: 77 Year
  Sex: Female
  Weight: 90 kg

DRUGS (3)
  1. CLINDAMYCIN [Suspect]
     Active Substance: CLINDAMYCIN
     Indication: Hip surgery
     Dosage: UNK (IN MG)
     Route: 048
     Dates: start: 20210906, end: 20210916
  2. CEFPROZIL [Suspect]
     Active Substance: CEFPROZIL
     Indication: Hip surgery
     Dosage: UNK
     Route: 048
     Dates: start: 20210906, end: 20210916
  3. INNOHEP [Concomitant]
     Active Substance: TINZAPARIN SODIUM
     Indication: Hip surgery
     Dosage: UNK
     Route: 058
     Dates: start: 20210906, end: 20210916

REACTIONS (3)
  - Rash maculo-papular [Recovering/Resolving]
  - Pyrexia [Unknown]
  - Off label use [Unknown]

NARRATIVE: CASE EVENT DATE: 20210906
